FAERS Safety Report 5672449-0 (Version None)
Quarter: 2008Q1

REPORT INFORMATION
  Report Type: 
  Country: None (occurrence: None)
  Receive Date: 20080318
  Receipt Date: 20080318
  Transmission Date: 20080703
  Serious: Yes (Death)
  Sender: FDA-Public Use
  Company Number: None

PATIENT
  Age: 70 Year
  Sex: Female
  Weight: 82.5547 kg

DRUGS (8)
  1. AMIODARONE HCL [Suspect]
     Indication: ARRHYTHMIA
     Dosage: 300MG TID PO
     Route: 048
  2. AZITHROMYCIN [Suspect]
     Indication: PNEUMONIA
     Dosage: 500MG DAILY PO
     Route: 048
     Dates: start: 20071203, end: 20071205
  3. LEVOFLOXACIN [Concomitant]
  4. LIPITOR [Concomitant]
  5. PLAVIX [Concomitant]
  6. CYMBALTA [Concomitant]
  7. NEURONTIN [Concomitant]
  8. PLETAL [Concomitant]

REACTIONS (2)
  - ANOXIC ENCEPHALOPATHY [None]
  - CARDIAC ARREST [None]
